FAERS Safety Report 15168901 (Version 2)
Quarter: 2018Q3

REPORT INFORMATION
  Report Type: Spontaneous
  Country: US (occurrence: US)
  Receive Date: 20180720
  Receipt Date: 20180831
  Transmission Date: 20181010
  Serious: No
  Sender: FDA-Public Use
  Company Number: US-AMGEN-USASP2018096969

PATIENT
  Sex: Female

DRUGS (2)
  1. ENBREL [Suspect]
     Active Substance: ETANERCEPT
     Indication: PRODUCT USED FOR UNKNOWN INDICATION
     Dosage: UNK
     Route: 065
  2. ENBREL [Suspect]
     Active Substance: ETANERCEPT
     Dosage: UNK
     Route: 065
     Dates: start: 201710

REACTIONS (7)
  - Fatigue [Not Recovered/Not Resolved]
  - Musculoskeletal stiffness [Unknown]
  - Drug effect incomplete [Unknown]
  - Injection site erythema [Unknown]
  - Pain in extremity [Unknown]
  - Sinusitis [Unknown]
  - Peripheral swelling [Unknown]
